FAERS Safety Report 7663913-3 (Version None)
Quarter: 2011Q3

REPORT INFORMATION
  Report Type: 
  Country: None (occurrence: None)
  Receive Date: 20110805
  Receipt Date: 20100809
  Transmission Date: 20111222
  Serious: No
  Sender: FDA-Public Use
  Company Number: US-ABBOTT-10P-163-0663237-00

PATIENT
  Sex: Male
  Weight: 104.42 kg

DRUGS (5)
  1. LISINOPRIL [Concomitant]
     Indication: HYPERTENSION
  2. HYDROCHLOROTHIAZIDE [Concomitant]
     Indication: HYPERTENSION
  3. NIASPAN [Suspect]
     Indication: BLOOD CHOLESTEROL INCREASED
     Dosage: 2-500MG TABLETS EVERY NIGHT
     Dates: start: 20080101
  4. ALLOPURINOL [Concomitant]
     Indication: GOUT
  5. CLONIDINE [Concomitant]
     Indication: HYPERTENSION

REACTIONS (2)
  - GOUT [None]
  - STRESS [None]
